FAERS Safety Report 9239115 (Version 2)
Quarter: 2013Q4

REPORT INFORMATION
  Report Type: Report from Study
  Country: BR (occurrence: BR)
  Receive Date: 20130418
  Receipt Date: 20131129
  Transmission Date: 20140711
  Serious: Yes (Other)
  Sender: FDA-Public Use
  Company Number: PHHY2013BR037073

PATIENT
  Sex: Female

DRUGS (3)
  1. NEOTIAPIM [Suspect]
     Indication: DEPRESSION
     Dosage: 4 DF, AT NIGHT
  2. NEOTIAPIM [Suspect]
     Dosage: 25 MG, QID
  3. NEOTIAPIM [Suspect]
     Dosage: 100 MG, BID

REACTIONS (6)
  - Feeling abnormal [Recovering/Resolving]
  - Crying [Recovering/Resolving]
  - Aphagia [Recovering/Resolving]
  - Memory impairment [Not Recovered/Not Resolved]
  - Depression [Recovering/Resolving]
  - Dizziness [Not Recovered/Not Resolved]
